FAERS Safety Report 9045565 (Version 2)
Quarter: 2013Q3

REPORT INFORMATION
  Report Type: Spontaneous
  Country: PT (occurrence: PT)
  Receive Date: 20130131
  Receipt Date: 20130730
  Transmission Date: 20140515
  Serious: Yes (Other)
  Sender: FDA-Public Use
  Company Number: PT-AMGEN-PRTSP2013006647

PATIENT
  Sex: 0

DRUGS (5)
  1. ENBREL [Suspect]
     Indication: RHEUMATOID ARTHRITIS
     Dosage: 25 MG, 2X/WEEK
     Route: 058
     Dates: start: 200603, end: 2008
  2. ENBREL [Suspect]
     Dosage: 50 MG, WEEKLY
     Route: 058
     Dates: start: 2008, end: 201201
  3. ENBREL [Suspect]
     Dosage: 50 MG, WEEKLY
     Route: 065
     Dates: end: 20120725
  4. METHOTREXATE [Concomitant]
     Indication: RHEUMATOID ARTHRITIS
     Dosage: UNK
  5. PLAQUINOL [Concomitant]
     Dosage: UNK

REACTIONS (1)
  - Non-Hodgkin^s lymphoma [Unknown]
